FAERS Safety Report 15357826 (Version 1)
Quarter: 2018Q3

REPORT INFORMATION
  Report Type: Report from Study
  Country: CO (occurrence: CO)
  Receive Date: 20180906
  Receipt Date: 20180906
  Transmission Date: 20181010
  Serious: Yes (Hospitalization)
  Sender: FDA-Public Use
  Company Number: CO-BAYER-2018-167197

PATIENT
  Age: 37 Year
  Sex: Female

DRUGS (3)
  1. CARBAMAZEPINA [Concomitant]
     Active Substance: CARBAMAZEPINE
     Indication: PAIN
     Dosage: 1 DF,EVERY 12 HOURS
     Dates: start: 20180901
  2. PREDNISOLONE ACETATE. [Concomitant]
     Active Substance: PREDNISOLONE ACETATE
     Indication: STEROID THERAPY
     Dosage: 5 DF, BID FOR 15 DAYS
     Dates: start: 20180901
  3. BETAFERON [Suspect]
     Active Substance: INTERFERON BETA-1B
     Indication: MULTIPLE SCLEROSIS
     Dosage: 8 MIU, QOD
     Dates: start: 20130430

REACTIONS (2)
  - Pain [Recovered/Resolved with Sequelae]
  - Mobility decreased [Recovered/Resolved with Sequelae]

NARRATIVE: CASE EVENT DATE: 20180831
